FAERS Safety Report 7632448-6 (Version None)
Quarter: 2011Q3

REPORT INFORMATION
  Report Type: 
  Country: None (occurrence: None)
  Receive Date: 20110725
  Receipt Date: 20101013
  Transmission Date: 20111222
  Serious: No
  Sender: FDA-Public Use
  Company Number: US-BRISTOL-MYERS SQUIBB COMPANY-15281181

PATIENT
  Age: 55 Year
  Sex: Male
  Weight: 118 kg

DRUGS (3)
  1. COUMADIN [Suspect]
     Indication: PULMONARY EMBOLISM
     Dosage: CURRENTLY:3MG WAS TAKEN OFF IN FEB2009 TABS
  2. LEVOTHYROXINE SODIUM [Concomitant]
  3. LOVENOX [Concomitant]

REACTIONS (1)
  - LABORATORY TEST ABNORMAL [None]
